FAERS Safety Report 17529435 (Version 4)
Quarter: 2020Q2

REPORT INFORMATION
  Report Type: Spontaneous
  Country: JP (occurrence: JP)
  Receive Date: 20200312
  Receipt Date: 20200610
  Transmission Date: 20200713
  Serious: Yes (Hospitalization, Other)
  Sender: FDA-Public Use
  Company Number: JP-ASTRAZENECA-2020SE34729

PATIENT
  Age: 27712 Day
  Sex: Female
  Weight: 41 kg

DRUGS (10)
  1. IMFINZI [Suspect]
     Active Substance: DURVALUMAB
     Indication: NON-SMALL CELL LUNG CANCER
     Route: 041
     Dates: start: 20190801, end: 20191018
  2. MAGMITT [Concomitant]
     Active Substance: MAGNESIUM OXIDE
     Indication: CONSTIPATION
     Route: 048
     Dates: start: 20190610
  3. LOXOPROFEN SODIUM HYDRATE [Concomitant]
     Active Substance: LOXOPROFEN SODIUM DIHYDRATE
     Indication: NON-SMALL CELL LUNG CANCER
     Route: 048
     Dates: start: 20190610
  4. SYMPROIC [Concomitant]
     Active Substance: NALDEMEDINE
     Indication: CONSTIPATION
     Route: 048
     Dates: start: 20190610
  5. ZOLPIDEM TARTRATE. [Concomitant]
     Active Substance: ZOLPIDEM TARTRATE
     Indication: INSOMNIA
     Route: 048
     Dates: start: 20190610
  6. ASTOMIN [Concomitant]
     Active Substance: DIMEMORFAN
     Indication: NON-SMALL CELL LUNG CANCER
     Route: 048
     Dates: start: 20190610
  7. CARBOPLATIN. [Suspect]
     Active Substance: CARBOPLATIN
     Indication: NON-SMALL CELL LUNG CANCER
     Dosage: 130.0MG UNKNOWN
     Route: 065
     Dates: start: 20190613, end: 20190704
  8. NARUSUS [Concomitant]
     Active Substance: HYDROMORPHONE HYDROCHLORIDE
     Indication: NON-SMALL CELL LUNG CANCER
     Route: 048
     Dates: start: 20190610
  9. PACLITAXEL. [Suspect]
     Active Substance: PACLITAXEL
     Indication: NON-SMALL CELL LUNG CANCER
     Dosage: 55.0MG UNKNOWN
     Route: 065
     Dates: start: 20190613, end: 20190704
  10. AMBROXOL HYDROCHLORIDE [Concomitant]
     Active Substance: AMBROXOL HYDROCHLORIDE
     Indication: NON-SMALL CELL LUNG CANCER
     Route: 048
     Dates: start: 20190610

REACTIONS (2)
  - Pulmonary tuberculosis [Recovered/Resolved]
  - Interstitial lung disease [Unknown]

NARRATIVE: CASE EVENT DATE: 20191016
